FAERS Safety Report 4497305-5 (Version None)
Quarter: 2004Q3

REPORT INFORMATION
  Report Type: 
  Country: None (occurrence: None)
  Receive Date: 20040927
  Receipt Date: 20040722
  Transmission Date: 20050211
  Serious: No
  Sender: FDA-Public Use
  Company Number: USA040773410

PATIENT
  Age: 57 Year
  Sex: Female
  Weight: 89 kg

DRUGS (6)
  1. STRATTERA [Suspect]
     Indication: ATTENTION DEFICIT/HYPERACTIVITY DISORDER
     Dosage: 80 MG DAY
     Dates: start: 20040718
  2. OXYCONTIN [Concomitant]
  3. COUMADIN [Concomitant]
  4. AMIODARONE HCL [Concomitant]
  5. AMBIEN [Concomitant]
  6. FLUOXETINE [Concomitant]

REACTIONS (3)
  - APATHY [None]
  - FATIGUE [None]
  - LISTLESS [None]
